FAERS Safety Report 5868985-4 (Version None)
Quarter: 2008Q3

REPORT INFORMATION
  Report Type: 
  Country: None (occurrence: None)
  Receive Date: 20080902
  Receipt Date: 20080902
  Transmission Date: 20090109
  Serious: Yes (Hospitalization)
  Sender: FDA-Public Use
  Company Number: None

PATIENT
  Age: 64 Year
  Sex: Male
  Weight: 72 kg

DRUGS (1)
  1. ERLOTINIB [Suspect]
     Indication: NEOPLASM MALIGNANT
     Dosage: 150 MG EVERY DAY PO
     Route: 048
     Dates: start: 20080624, end: 20080625

REACTIONS (1)
  - ANGIOEDEMA [None]
